FAERS Safety Report 4353876-0 (Version None)
Quarter: 2004Q2

REPORT INFORMATION
  Report Type: 
  Country: None (occurrence: None)
  Receive Date: 20040503
  Receipt Date: 20040426
  Transmission Date: 20050107
  Serious: Yes (Congenital Anomaly)
  Sender: FDA-Public Use
  Company Number: 2004206092DE

PATIENT
  Sex: Male

DRUGS (9)
  1. VANTIN [Suspect]
     Indication: BORRELIA BURGDORFERI SEROLOGY POSITIVE
     Dosage: 200 MG, DAILY, TRANSPLACENTAL
     Route: 064
     Dates: start: 20010711, end: 20010720
  2. FOLIC ACID [Concomitant]
  3. TROMCARDIN (MAGNESIUM ASPARTATE, ASPARTATE POTASSIUM) [Concomitant]
  4. MAGNETRANS FORTE [Concomitant]
  5. VERTIGOHEEL (HOMEOPATICS NOS) [Concomitant]
  6. CLOTRIMAZOLE [Concomitant]
  7. MULTIBIONTA (CALCIUM PANTOTHENATE) [Concomitant]
  8. METHYLDOPA (METHYDOPA) [Concomitant]
  9. PARTUSISTEN (FENOTERFOL HYDROCHLORIDE) [Concomitant]

REACTIONS (9)
  - CAESAREAN SECTION [None]
  - CONGENITAL ORAL MALFORMATION [None]
  - HYPOGLYCAEMIA NEONATAL [None]
  - MATERNAL DRUGS AFFECTING FOETUS [None]
  - PLACENTAL INSUFFICIENCY [None]
  - PRE-ECLAMPSIA [None]
  - SPEECH DISORDER DEVELOPMENTAL [None]
  - TOOTH HYPOPLASIA [None]
  - UMBILICAL CORD AROUND NECK [None]
